FAERS Safety Report 18703302 (Version 2)
Quarter: 2021Q1

REPORT INFORMATION
  Report Type: Other
  Country: CA (occurrence: CA)
  Receive Date: 20210105
  Receipt Date: 20210115
  Transmission Date: 20210419
  Serious: Yes (Hospitalization)
  Sender: FDA-Public Use
  Company Number: CA-ROCHE-2101275

PATIENT
  Age: 59 Year
  Sex: Female
  Weight: 75 kg

DRUGS (12)
  1. HERCEPTIN [Suspect]
     Active Substance: TRASTUZUMAB
     Route: 042
     Dates: start: 20140602
  2. KADCYLA [Suspect]
     Active Substance: ADO-TRASTUZUMAB EMTANSINE
     Route: 042
     Dates: start: 20190225
  3. CODEINE [Suspect]
     Active Substance: CODEINE
     Indication: COUGH
     Route: 048
  4. CALCIUM [Concomitant]
     Active Substance: CALCIUM
  5. HERCEPTIN [Suspect]
     Active Substance: TRASTUZUMAB
     Route: 042
     Dates: start: 20131013
  6. HERCEPTIN [Suspect]
     Active Substance: TRASTUZUMAB
     Indication: BREAST CANCER METASTATIC
     Route: 042
     Dates: start: 20130812
  7. PERJETA [Suspect]
     Active Substance: PERTUZUMAB
     Indication: BREAST CANCER METASTATIC
     Dosage: LOADING DOSE
     Route: 042
     Dates: start: 20130927
  8. PERJETA [Suspect]
     Active Substance: PERTUZUMAB
     Dosage: MAINTENANCE DOSE
     Route: 042
     Dates: start: 20131015, end: 20140422
  9. TAXOTERE [Suspect]
     Active Substance: DOCETAXEL
     Indication: BREAST CANCER METASTATIC
     Route: 042
     Dates: start: 20130812, end: 201311
  10. KADCYLA [Suspect]
     Active Substance: ADO-TRASTUZUMAB EMTANSINE
     Indication: BREAST CANCER METASTATIC
     Dosage: NO PIRS BETWEEN 03/JAN/2017 TO 06/JUN/ 018. DOSAGE NOTED ACCORDING TO PRESCRIPTION ENROLLMENTS
     Route: 042
     Dates: start: 20140602, end: 20180516
  11. KADCYLA [Suspect]
     Active Substance: ADO-TRASTUZUMAB EMTANSINE
     Dosage: NO PIRS BETWEEN 03/JAN/2017 TO 06/JUN/2018. DOSAGE NOTED ACCORDING TO PRESCRIPTION ENROLLMENTS.?DOSA
     Route: 042
     Dates: start: 20180606, end: 20190128
  12. KADCYLA [Suspect]
     Active Substance: ADO-TRASTUZUMAB EMTANSINE
     Dosage: NO PIRS AVAILABLE TO CONFIRM THE DOSE
     Route: 042
     Dates: start: 20170103, end: 20180606

REACTIONS (5)
  - Pneumonia [Unknown]
  - Blood pressure diastolic decreased [Unknown]
  - Dyspnoea [Not Recovered/Not Resolved]
  - Oxygen saturation decreased [Unknown]
  - Weight decreased [Not Recovered/Not Resolved]

NARRATIVE: CASE EVENT DATE: 201408
